FAERS Safety Report 14719202 (Version 1)
Quarter: 2018Q2

REPORT INFORMATION
  Report Type: Report from Study
  Country: US (occurrence: US)
  Receive Date: 20180405
  Receipt Date: 20180405
  Transmission Date: 20180711
  Serious: Yes (Hospitalization)
  Sender: FDA-Public Use
  Company Number: US-GILEAD-2018-0330175

PATIENT
  Age: 24 Year
  Sex: Female

DRUGS (23)
  1. MAGNESIUM OXIDE. [Concomitant]
     Active Substance: MAGNESIUM OXIDE
  2. TYVASO [Concomitant]
     Active Substance: TREPROSTINIL
  3. WARFARIN [Concomitant]
     Active Substance: WARFARIN
  4. FAMOTIDINE. [Concomitant]
     Active Substance: FAMOTIDINE
  5. COLOCORT [Concomitant]
     Active Substance: HYDROCORTISONE
  6. IRON [Concomitant]
     Active Substance: IRON
  7. BUMEX [Concomitant]
     Active Substance: BUMETANIDE
  8. PREDNISONE. [Concomitant]
     Active Substance: PREDNISONE
  9. DIGOXIN. [Concomitant]
     Active Substance: DIGOXIN
  10. RANITIDINE. [Concomitant]
     Active Substance: RANITIDINE
  11. FUROSEMIDE. [Concomitant]
     Active Substance: FUROSEMIDE
  12. POTASSIUM CHLORIDE. [Concomitant]
     Active Substance: POTASSIUM CHLORIDE
  13. MULTIVITAMIN                       /00097801/ [Concomitant]
     Active Substance: VITAMINS
  14. HYDROCORTISONE. [Concomitant]
     Active Substance: HYDROCORTISONE
  15. VITAMIN C [Concomitant]
     Active Substance: ASCORBIC ACID
  16. ADCIRCA [Concomitant]
     Active Substance: TADALAFIL
  17. POTASSIUM [Concomitant]
     Active Substance: POTASSIUM
  18. REMODULIN [Concomitant]
     Active Substance: TREPROSTINIL
  19. AMBRISENTAN [Suspect]
     Active Substance: AMBRISENTAN
     Indication: PULMONARY HYPERTENSION
     Dosage: 10 MG, QD
     Route: 065
     Dates: start: 20170930
  20. LASIX [Concomitant]
     Active Substance: FUROSEMIDE
  21. FERROUS GLUCONATE [Concomitant]
     Active Substance: FERROUS GLUCONATE
  22. BUMETANIDE. [Concomitant]
     Active Substance: BUMETANIDE
  23. METOLAZONE. [Concomitant]
     Active Substance: METOLAZONE

REACTIONS (1)
  - Bacterial infection [Recovered/Resolved]

NARRATIVE: CASE EVENT DATE: 20180306
